FAERS Safety Report 4270719-4 (Version None)
Quarter: 2004Q1

REPORT INFORMATION
  Report Type: 
  Country: None (occurrence: None)
  Receive Date: 20040113
  Receipt Date: 20040105
  Transmission Date: 20041129
  Serious: Yes (Death)
  Sender: FDA-Public Use
  Company Number: MEDI-0001229 (0)

PATIENT
  Age: 16 Month
  Sex: Male
  Weight: 8.8 kg

DRUGS (5)
  1. SYNAGIS [Suspect]
     Indication: ANTIVIRAL PROPHYLAXIS
     Dosage: 130 MG, 1 IN 30 D, INTRA-MUSCULAR
     Route: 030
     Dates: start: 20031211, end: 20031211
  2. PREDNISONE [Concomitant]
  3. ZANTAC [Concomitant]
  4. MAALOX (MAGNESIUM HYDROXIDE, ALUMINIUM HYDROXIDE GEL) [Concomitant]
  5. POLY-VI-SOL (ERGOCALCIFEROL, ASCORBIC ACID, THIAMINE, RETINOL, RIBOFLA [Concomitant]

REACTIONS (2)
  - DYSPNOEA [None]
  - RESPIRATORY ARREST [None]
